FAERS Safety Report 20814410 (Version 1)
Quarter: 2022Q2

REPORT INFORMATION
  Report Type: Spontaneous
  Country: US (occurrence: None)
  Receive Date: 20220511
  Receipt Date: 20220511
  Transmission Date: 20220721
  Serious: No
  Sender: FDA-Public Use
  Company Number: US-Merck Healthcare KGaA-9318787

PATIENT
  Sex: Female

DRUGS (1)
  1. EUTHYROX [Suspect]
     Active Substance: LEVOTHYROXINE SODIUM
     Indication: Hypothyroidism
     Dates: start: 202112, end: 20220429

REACTIONS (9)
  - Dizziness [Unknown]
  - Chest pain [Unknown]
  - Blood urea nitrogen/creatinine ratio increased [Unknown]
  - Blood potassium decreased [Unknown]
  - Troponin I decreased [Unknown]
  - Globulins increased [Unknown]
  - Protein total increased [Unknown]
  - Palpitations [Unknown]
  - Tri-iodothyronine increased [Unknown]
